FAERS Safety Report 5871760-8 (Version None)
Quarter: 2008Q3

REPORT INFORMATION
  Report Type: 
  Country: None (occurrence: None)
  Receive Date: 20080905
  Receipt Date: 20080825
  Transmission Date: 20090109
  Serious: Yes (Other)
  Sender: FDA-Public Use
  Company Number: US-ROCHE-578830

PATIENT
  Sex: Female
  Weight: 104.3 kg

DRUGS (2)
  1. CAPECITABINE [Suspect]
     Indication: ANAL CANCER METASTATIC
     Dosage: DOSE: 2 WEEKS ON AND 1 WEEK OFF; PATIENT HAD RECEIVED 2 CYCLES TOTAL
     Route: 048
     Dates: start: 20080602
  2. CARBOPLATIN [Concomitant]

REACTIONS (1)
  - DISEASE PROGRESSION [None]
